FAERS Safety Report 24660061 (Version 1)
Quarter: 2024Q4

REPORT INFORMATION
  Report Type: Spontaneous
  Country: IT (occurrence: IT)
  Receive Date: 20241125
  Receipt Date: 20241125
  Transmission Date: 20250115
  Serious: Yes (Hospitalization)
  Sender: MYLAN
  Company Number: None

PATIENT
  Age: 82 Year
  Sex: Male

DRUGS (5)
  1. FUROSEMIDE [Suspect]
     Active Substance: FUROSEMIDE
     Indication: Hypertension
     Dosage: 25 MILLIGRAM, QD, 25MG/DAY
     Route: 048
     Dates: end: 20241018
  2. BISOPROLOL [Suspect]
     Active Substance: BISOPROLOL
     Indication: Hypertension
     Dosage: 2.5 MILLIGRAM, QD, 2.5MG/DAY
     Route: 048
     Dates: end: 20241019
  3. ELIQUIS [Concomitant]
     Active Substance: APIXABAN
     Indication: Atrial fibrillation
     Dosage: 2.5 MILLIGRAM, BID, 2.5 MG, 2 TABLETS/DAY
     Route: 048
     Dates: end: 19700101
  4. HYDROCHLOROTHIAZIDE\ZOFENOPRIL CALCIUM [Concomitant]
     Active Substance: HYDROCHLOROTHIAZIDE\ZOFENOPRIL CALCIUM
     Indication: Hypertension
     Dosage: 1 DOSAGE FORM, QD, 30/12.5MG, 1 TABLET/DAY
     Route: 048
     Dates: end: 20241018
  5. OMEPRAZOLE [Concomitant]
     Active Substance: OMEPRAZOLE
     Dosage: 20 MILLIGRAM, QD, 20 MG/DAY
     Route: 048
     Dates: end: 20241019

REACTIONS (1)
  - Erythrodermic psoriasis [Recovered/Resolved]

NARRATIVE: CASE EVENT DATE: 20240919
